FAERS Safety Report 15226293 (Version 1)
Quarter: 2018Q3

REPORT INFORMATION
  Report Type: Spontaneous
  Country: US (occurrence: US)
  Receive Date: 20180706
  Receipt Date: 20180706
  Transmission Date: 20181010
  Serious: Yes (Life-Threatening, Hospitalization, Disabling)
  Sender: FDA-Public Use
  Company Number: None

PATIENT
  Age: 87 Year
  Sex: Male

DRUGS (1)
  1. WARFARIN [Suspect]
     Active Substance: WARFARIN
     Indication: ATRIAL FIBRILLATION
     Route: 048
     Dates: start: 20170127, end: 20170415

REACTIONS (4)
  - Cerebral haemorrhage [None]
  - Subarachnoid haemorrhage [None]
  - International normalised ratio increased [None]
  - Extra dose administered [None]

NARRATIVE: CASE EVENT DATE: 20170415
